FAERS Safety Report 6195720-5 (Version None)
Quarter: 2009Q2

REPORT INFORMATION
  Report Type: 
  Country: None (occurrence: None)
  Receive Date: 20090520
  Receipt Date: 20090513
  Transmission Date: 20091009
  Serious: Yes (Hospitalization)
  Sender: FDA-Public Use
  Company Number: JP-SP-2009-02192

PATIENT
  Age: 77 Year
  Sex: Male

DRUGS (4)
  1. IMMUCYST [Suspect]
     Indication: BLADDER CANCER
     Route: 043
     Dates: start: 20080325, end: 20080603
  2. ISONIAZID [Concomitant]
     Route: 048
     Dates: start: 20080512, end: 20080630
  3. AMLODIPINE BESYLATE [Concomitant]
     Route: 048
  4. LEVOFLOXACIN [Concomitant]
     Route: 048
     Dates: start: 20080617, end: 20080630

REACTIONS (2)
  - JAUNDICE [None]
  - MALAISE [None]
